FAERS Safety Report 7323684-7 (Version None)
Quarter: 2011Q1

REPORT INFORMATION
  Report Type: 
  Country: None (occurrence: None)
  Receive Date: 20110301
  Receipt Date: 20101001
  Transmission Date: 20110831
  Serious: Yes (Hospitalization)
  Sender: FDA-Public Use
  Company Number: US-BAYER-201020531NA

PATIENT
  Sex: Female
  Weight: 94.091 kg

DRUGS (7)
  1. LEVOTHYROXINE SODIUM [Concomitant]
     Route: 048
  2. IBUPROFEN [Concomitant]
     Dates: start: 20010101
  3. ADIPEX-P [Concomitant]
     Route: 048
  4. SYNTHROID [Concomitant]
  5. YAZ [Suspect]
     Indication: PRODUCT USED FOR UNKNOWN INDICATION
     Route: 048
     Dates: start: 20080409, end: 20080514
  6. LOVENOX [Concomitant]
     Dosage: 80 MG, BID
  7. ASCORBIC ACID [Concomitant]
     Dates: start: 20010101

REACTIONS (8)
  - PULMONARY HYPERTENSION [None]
  - PULMONARY INFARCTION [None]
  - LUNG INFILTRATION [None]
  - PLEURAL EFFUSION [None]
  - PYREXIA [None]
  - PULMONARY EMBOLISM [None]
  - CHEST PAIN [None]
  - DYSPNOEA [None]
